FAERS Safety Report 7197082-3 (Version None)
Quarter: 2010Q4

REPORT INFORMATION
  Report Type: 
  Country: None (occurrence: None)
  Receive Date: 20101224
  Receipt Date: 20101220
  Transmission Date: 20110411
  Serious: Yes (Other)
  Sender: FDA-Public Use
  Company Number: DE-BRISTOL-MYERS SQUIBB COMPANY-15452733

PATIENT
  Sex: Female

DRUGS (3)
  1. ABILIFY [Suspect]
  2. VALPROATE SODIUM [Suspect]
  3. TRIMIPRAMINE MALEATE [Suspect]

REACTIONS (2)
  - IMMUNE SYSTEM DISORDER [None]
  - PANCREATITIS [None]
